FAERS Safety Report 6068698-2 (Version None)
Quarter: 2009Q1

REPORT INFORMATION
  Report Type: 
  Country: None (occurrence: None)
  Receive Date: 20090206
  Receipt Date: 20090128
  Transmission Date: 20090719
  Serious: Yes (Hospitalization)
  Sender: FDA-Public Use
  Company Number: B0556358A

PATIENT
  Age: 20 Year
  Sex: Male

DRUGS (5)
  1. CLAVENTIN [Suspect]
     Route: 042
     Dates: start: 20080729, end: 20080730
  2. NEBCIN [Suspect]
     Route: 042
     Dates: start: 20080729, end: 20080730
  3. AMOXICILLIN [Suspect]
     Route: 065
     Dates: start: 20080716, end: 20080720
  4. BARBITURATES (UNSPECIFIED) [Concomitant]
     Indication: SEDATION
  5. UNSPECIFIED TREATMENT [Concomitant]

REACTIONS (8)
  - AGRANULOCYTOSIS [None]
  - EOSINOPHILIA [None]
  - ERYTHEMA [None]
  - HAEMODYNAMIC INSTABILITY [None]
  - PYREXIA [None]
  - RASH [None]
  - RASH PUSTULAR [None]
  - SEPSIS [None]
